FAERS Safety Report 15440588 (Version 1)
Quarter: 2018Q3

REPORT INFORMATION
  Report Type: Spontaneous
  Country: GE (occurrence: GE)
  Receive Date: 20180928
  Receipt Date: 20180928
  Transmission Date: 20181010
  Serious: Yes (Death, Other)
  Sender: FDA-Public Use
  Company Number: GE-PFIZER INC-2018391725

PATIENT
  Age: 79 Year
  Sex: Male

DRUGS (1)
  1. LINEZOLID. [Suspect]
     Active Substance: LINEZOLID
     Dosage: UNK

REACTIONS (4)
  - Cardiac arrest [Fatal]
  - Pulmonary hypertension [Unknown]
  - Prothrombin time prolonged [Unknown]
  - Coagulopathy [Unknown]

NARRATIVE: CASE EVENT DATE: 20180713
